FAERS Safety Report 8418556-0 (Version None)
Quarter: 2012Q2

REPORT INFORMATION
  Report Type: 
  Country: None (occurrence: None)
  Receive Date: 20120607
  Receipt Date: 20120530
  Transmission Date: 20120825
  Serious: Yes (Other)
  Sender: FDA-Public Use
  Company Number: DE-UCBSA-058549

PATIENT
  Sex: Female

DRUGS (7)
  1. TILIDIN [Concomitant]
     Indication: PAIN
  2. CALCIGEN D [Concomitant]
     Indication: OSTEOPOROSIS
  3. PANTOPRAZOLE [Concomitant]
     Indication: GASTRIC ULCER
  4. RANTUDIL RET [Concomitant]
     Indication: PAIN
  5. PREDNISOLONE [Concomitant]
     Indication: RHEUMATOID ARTHRITIS
  6. CIMZIA [Suspect]
     Indication: RHEUMATOID ARTHRITIS
     Dates: start: 20100930, end: 20111115
  7. ARAVA [Concomitant]
     Indication: RHEUMATOID ARTHRITIS
     Dates: start: 20061026

REACTIONS (2)
  - PSORIASIS [None]
  - ABSCESS ORAL [None]
